FAERS Safety Report 18622542 (Version 1)
Quarter: 2020Q4

REPORT INFORMATION
  Report Type: Spontaneous
  Country: JP (occurrence: JP)
  Receive Date: 20201216
  Receipt Date: 20201216
  Transmission Date: 20210114
  Serious: Yes (Other)
  Sender: FDA-Public Use
  Company Number: JP-PFIZER INC-2020493633

PATIENT

DRUGS (1)
  1. SOLANAX [Suspect]
     Active Substance: ALPRAZOLAM
     Dosage: 2 DF, DAILY
     Route: 048

REACTIONS (1)
  - Angina pectoris [Recovering/Resolving]
